FAERS Safety Report 8547167-1 (Version None)
Quarter: 2012Q3

REPORT INFORMATION
  Report Type: 
  Country: None (occurrence: None)
  Receive Date: 20120727
  Receipt Date: 20120221
  Transmission Date: 20120928
  Serious: No
  Sender: FDA-Public Use
  Company Number: US-ASTRAZENECA-2012SE12246

PATIENT
  Age: 24 Year
  Sex: Female

DRUGS (1)
  1. SEROQUEL [Suspect]
     Indication: MOOD SWINGS
     Route: 048

REACTIONS (3)
  - OFF LABEL USE [None]
  - BRONCHITIS [None]
  - MALAISE [None]
